FAERS Safety Report 16760361 (Version 1)
Quarter: 2019Q3

REPORT INFORMATION
  Report Type: Spontaneous
  Country: US (occurrence: US)
  Receive Date: 20190830
  Receipt Date: 20190830
  Transmission Date: 20191005
  Serious: No
  Sender: FDA-Public Use
  Company Number: US-JNJFOC-20190835147

PATIENT
  Sex: Male

DRUGS (1)
  1. ZYTIGA [Suspect]
     Active Substance: ABIRATERONE ACETATE
     Indication: PRODUCT USED FOR UNKNOWN INDICATION
     Route: 048

REACTIONS (7)
  - Dizziness [Unknown]
  - Peripheral swelling [Unknown]
  - Asthenia [Unknown]
  - Fatigue [Unknown]
  - Arthropathy [Unknown]
  - Disorientation [Unknown]
  - Nausea [Unknown]
